FAERS Safety Report 16001198 (Version 1)
Quarter: 2019Q1

REPORT INFORMATION
  Report Type: Spontaneous
  Country: GB (occurrence: GB)
  Receive Date: 20190225
  Receipt Date: 20190225
  Transmission Date: 20190418
  Serious: Yes (Other)
  Sender: FDA-Public Use
  Company Number: GB-JNJFOC-20190224433

PATIENT
  Age: 34 Year
  Sex: Female
  Weight: 88 kg

DRUGS (10)
  1. COSMOCOL [Concomitant]
     Dosage: TAKE 1 TO 3 SACHETS DAILY IN DIVIDED DOSES
     Route: 065
     Dates: start: 20190109, end: 20190201
  2. OXYBUTYNIN. [Suspect]
     Active Substance: OXYBUTYNIN CHLORIDE
     Indication: PRODUCT USED FOR UNKNOWN INDICATION
     Route: 065
     Dates: start: 20181228
  3. MORPHINE SULPHATE [Concomitant]
     Active Substance: MORPHINE SULFATE
     Route: 065
     Dates: start: 20180801
  4. NAPROXEN. [Concomitant]
     Active Substance: NAPROXEN
     Dosage: CUMULATIVE DOSE: 368.08334 DOSAGE FORM
     Route: 065
     Dates: start: 20180801
  5. SENNA [Concomitant]
     Active Substance: SENNA LEAF\SENNOSIDES\SENNOSIDES A AND B
     Route: 065
     Dates: start: 20190109, end: 20190119
  6. DARIFENACIN. [Concomitant]
     Active Substance: DARIFENACIN
     Route: 065
     Dates: start: 20190109
  7. TRAMADOL. [Concomitant]
     Active Substance: TRAMADOL
     Route: 065
     Dates: start: 20180801
  8. HYDROCORTISONE. [Concomitant]
     Active Substance: HYDROCORTISONE
     Route: 065
     Dates: start: 20181228, end: 20190104
  9. GABAPENTIN. [Concomitant]
     Active Substance: GABAPENTIN
     Route: 065
     Dates: start: 20181116
  10. OMEPRAZOLE. [Concomitant]
     Active Substance: OMEPRAZOLE
     Dosage: CUMULATIVE DOSE: 184.04167 DOSAGE FORM
     Route: 065
     Dates: start: 20180801

REACTIONS (1)
  - Haemoptysis [Recovered/Resolved]

NARRATIVE: CASE EVENT DATE: 20190201
